FAERS Safety Report 11630106 (Version 1)
Quarter: 2015Q4

REPORT INFORMATION
  Report Type: Spontaneous
  Country: US (occurrence: US)
  Receive Date: 20151014
  Receipt Date: 20151014
  Transmission Date: 20160304
  Serious: Yes (Hospitalization)
  Sender: FDA-Public Use
  Company Number: US-AMNEAL PHARMACEUTICALS-2015AMN00152

PATIENT
  Age: 21 Month
  Sex: Female

DRUGS (1)
  1. BUPRENORPHINE AND NALOXONE [Suspect]
     Active Substance: BUPRENORPHINE\NALOXONE

REACTIONS (2)
  - Overdose [Recovering/Resolving]
  - Accidental exposure to product by child [Recovered/Resolved]
